FAERS Safety Report 8839510 (Version 2)
Quarter: 2012Q4

REPORT INFORMATION
  Report Type: 
  Country: US (occurrence: US)
  Receive Date: 20121015
  Receipt Date: 20121128
  Transmission Date: 20130627
  Serious: Yes (Other)
  Sender: FDA-Public Use
  Company Number: US-SANOFI-AVENTIS-2012SA072040

PATIENT
  Age: 70 Year
  Sex: Male
  Weight: 86 kg

DRUGS (1)
  1. PLAVIX [Suspect]
     Indication: HEART DISORDER
     Route: 048
     Dates: start: 2004

REACTIONS (4)
  - Vascular graft [Unknown]
  - Fall [Unknown]
  - Contusion [Unknown]
  - Joint injury [Unknown]
